FAERS Safety Report 19694415 (Version 1)
Quarter: 2021Q3

REPORT INFORMATION
  Report Type: Spontaneous
  Country: DE (occurrence: DE)
  Receive Date: 20210813
  Receipt Date: 20210813
  Transmission Date: 20211014
  Serious: Yes (Congenital Anomaly, Other)
  Sender: FDA-Public Use
  Company Number: DE-BIOGEN-2021BI01038436

PATIENT
  Age: 0 Day
  Sex: Male
  Weight: 2.25 kg

DRUGS (1)
  1. TECFIDERA [Suspect]
     Active Substance: DIMETHYL FUMARATE
     Indication: MATERNAL EXPOSURE TIMING UNSPECIFIED
     Dosage: MAINTENANCE DOSE
     Route: 064
     Dates: start: 2019, end: 202006

REACTIONS (3)
  - Foetal exposure during pregnancy [Recovered/Resolved]
  - Low birth weight baby [Recovered/Resolved]
  - Arrhythmia neonatal [Recovered/Resolved]

NARRATIVE: CASE EVENT DATE: 20210205
